FAERS Safety Report 8908304 (Version 1)
Quarter: 2012Q4

REPORT INFORMATION
  Report Type: 
  Country: US (occurrence: US)
  Receive Date: 20121114
  Receipt Date: 20121114
  Transmission Date: 20130627
  Serious: Yes (Other)
  Sender: FDA-Public Use
  Company Number: CHPA2012US023244

PATIENT
  Age: 27 Year
  Sex: Female

DRUGS (2)
  1. THERAFLU FLU AND SORE THROAT [Suspect]
     Indication: MALAISE
     Dosage: 2 TSP, Q6H
     Route: 048
     Dates: start: 20121105
  2. THERAFLU FLU AND SORE THROAT [Suspect]
     Dosage: Unk, Unk
     Route: 048
     Dates: start: 2010

REACTIONS (6)
  - Infection [Not Recovered/Not Resolved]
  - Malaise [Not Recovered/Not Resolved]
  - Pyrexia [Not Recovered/Not Resolved]
  - Asthenia [Not Recovered/Not Resolved]
  - Headache [Not Recovered/Not Resolved]
  - Underdose [Unknown]
